FAERS Safety Report 5395783-0 (Version None)
Quarter: 2007Q3

REPORT INFORMATION
  Report Type: 
  Country: None (occurrence: None)
  Receive Date: 20070724
  Receipt Date: 20070712
  Transmission Date: 20080115
  Serious: Yes (Hospitalization, Other)
  Sender: FDA-Public Use
  Company Number: US-PFIZER INC-2006106565

PATIENT
  Sex: Female
  Weight: 67.6 kg

DRUGS (3)
  1. CELEBREX [Suspect]
     Indication: OSTEOARTHRITIS
     Dates: start: 20020601, end: 20021201
  2. BEXTRA [Suspect]
     Indication: OSTEOARTHRITIS
     Dates: start: 20030101
  3. VIOXX [Suspect]
     Indication: OSTEOARTHRITIS
     Dates: start: 20020101, end: 20030101

REACTIONS (1)
  - DEEP VEIN THROMBOSIS [None]
